FAERS Safety Report 13933724 (Version 3)
Quarter: 2018Q2

REPORT INFORMATION
  Report Type: Spontaneous
  Country: US (occurrence: US)
  Receive Date: 20170904
  Receipt Date: 20180430
  Transmission Date: 20180711
  Serious: Yes (Hospitalization)
  Sender: FDA-Public Use
  Company Number: US-DSJP-DSU-2017-134089

PATIENT

DRUGS (2)
  1. BENICAR [Suspect]
     Active Substance: OLMESARTAN MEDOXOMIL
     Indication: BLOOD PRESSURE MANAGEMENT
     Dosage: 20 MG, UNK
     Dates: start: 20040406, end: 20090429
  2. BENICAR [Suspect]
     Active Substance: OLMESARTAN MEDOXOMIL
     Dosage: 40 MG, QD
     Route: 048
     Dates: start: 20040406, end: 20090429

REACTIONS (5)
  - Constipation [Unknown]
  - Gastrooesophageal reflux disease [Unknown]
  - Diverticulum [Unknown]
  - Weight decreased [Recovered/Resolved]
  - Diverticulitis [Recovering/Resolving]

NARRATIVE: CASE EVENT DATE: 20050120
